FAERS Safety Report 15773286 (Version 3)
Quarter: 2019Q1

REPORT INFORMATION
  Report Type: Spontaneous
  Country: US (occurrence: US)
  Receive Date: 20181228
  Receipt Date: 20190207
  Transmission Date: 20190417
  Serious: Yes (Other)
  Sender: FDA-Public Use
  Company Number: US-BIOGEN-2018BI00557235

PATIENT
  Age: 28 Year
  Sex: Female

DRUGS (5)
  1. TYSABRI [Suspect]
     Active Substance: NATALIZUMAB
     Route: 065
     Dates: end: 20121121
  2. TYSABRI [Suspect]
     Active Substance: NATALIZUMAB
     Dosage: INFUSED OVER 1 HOUR
     Route: 065
     Dates: start: 2010
  3. TYSABRI [Suspect]
     Active Substance: NATALIZUMAB
     Indication: MULTIPLE SCLEROSIS
     Dosage: INFUSED OVER 1 HOUR
     Route: 065
     Dates: start: 20150610, end: 20180306
  4. TYSABRI [Suspect]
     Active Substance: NATALIZUMAB
     Route: 065
     Dates: start: 20091027
  5. TYSABRI [Suspect]
     Active Substance: NATALIZUMAB
     Dosage: INFUSED OVER 1 HOUR
     Route: 065
     Dates: end: 201403

REACTIONS (3)
  - Maternal exposure during pregnancy [Recovered/Resolved]
  - Umbilical cord around neck [Recovered/Resolved]
  - Foetal heart rate deceleration abnormality [Recovered/Resolved]

NARRATIVE: CASE EVENT DATE: 201803
